FAERS Safety Report 12675551 (Version 1)
Quarter: 2016Q3

REPORT INFORMATION
  Report Type: Spontaneous
  Country: US (occurrence: None)
  Receive Date: 20160822
  Receipt Date: 20160822
  Transmission Date: 20161109
  Serious: Yes (Death)
  Sender: FDA-Public Use
  Company Number: None

PATIENT
  Age: 18 Year
  Sex: Male

DRUGS (9)
  1. TOBRAMYCIN 300MG AKORN [Suspect]
     Active Substance: TOBRAMYCIN
     Indication: CYSTIC FIBROSIS
     Dosage: 300MG BID NEB
     Dates: start: 20160309, end: 20160718
  2. FLUTICASONE [Concomitant]
     Active Substance: FLUTICASONE\FLUTICASONE PROPIONATE
  3. EPIPEN [Concomitant]
     Active Substance: EPINEPHRINE
  4. NOXAFIL [Concomitant]
     Active Substance: POSACONAZOLE
  5. NYSTATIN. [Concomitant]
     Active Substance: NYSTATIN
  6. CHLORHEXIDINE GLUCONATE. [Concomitant]
     Active Substance: CHLORHEXIDINE GLUCONATE
  7. FERROUS SULFATE. [Concomitant]
     Active Substance: FERROUS SULFATE
  8. IPRATROPIUM [Concomitant]
     Active Substance: IPRATROPIUM
  9. SOD CHL [Concomitant]

REACTIONS (1)
  - Death [None]

NARRATIVE: CASE EVENT DATE: 20160813
